FAERS Safety Report 8325092-9 (Version None)
Quarter: 2012Q2

REPORT INFORMATION
  Report Type: 
  Country: None (occurrence: None)
  Receive Date: 20120501
  Receipt Date: 20120425
  Transmission Date: 20120825
  Serious: No
  Sender: FDA-Public Use
  Company Number: US-TEVA-335542USA

PATIENT
  Sex: Female
  Weight: 66.284 kg

DRUGS (3)
  1. PROMETHAZINE [Concomitant]
     Dosage: PRN
     Route: 048
  2. COPAXONE [Suspect]
     Indication: MULTIPLE SCLEROSIS
     Dosage: 20 MILLIGRAM;
     Route: 058
     Dates: start: 20120301
  3. GABAPENTIN [Concomitant]
     Indication: NEURALGIA
     Dosage: 900 MILLIGRAM;
     Route: 048

REACTIONS (1)
  - PRURITUS [None]
